FAERS Safety Report 6652502-5 (Version None)
Quarter: 2010Q1

REPORT INFORMATION
  Report Type: 
  Country: None (occurrence: None)
  Receive Date: 20100324
  Receipt Date: 20100311
  Transmission Date: 20100710
  Serious: Yes (Hospitalization, Other)
  Sender: FDA-Public Use
  Company Number: 008115

PATIENT
  Sex: Female
  Weight: 90 kg

DRUGS (3)
  1. NEUPRO [Suspect]
     Indication: PARKINSON'S DISEASE
     Dosage: (4 MG,QD TRANSDERMAL)
     Route: 062
     Dates: start: 20100211
  2. HYDROCHLOROTHIAZIDE [Concomitant]
  3. PRAVASTATIN SODIUM [Concomitant]

REACTIONS (2)
  - DYSPNOEA [None]
  - LUNG DISORDER [None]
